FAERS Safety Report 14169225 (Version 1)
Quarter: 2017Q4

REPORT INFORMATION
  Report Type: Spontaneous
  Country: US (occurrence: US)
  Receive Date: 20171107
  Receipt Date: 20171107
  Transmission Date: 20180321
  Serious: No
  Sender: FDA-Public Use
  Company Number: US-ACTELION-A-US2017-161775

PATIENT
  Age: 66 Year
  Sex: Male

DRUGS (6)
  1. MINOXIDIL. [Concomitant]
     Active Substance: MINOXIDIL
  2. LISINOPRIL. [Concomitant]
     Active Substance: LISINOPRIL
  3. DIALYVITE [Concomitant]
     Active Substance: ASCORBIC ACID\BIOTIN\CALCIUM PANTOTHENATE\COBALAMIN\FOLIC ACID\NIACINAMIDE\PYRIDOXINE HYDROCHLORIDE\RIBOFLAVIN\THIAMINE MONONITRATE
  4. OPSUMIT [Suspect]
     Active Substance: MACITENTAN
     Indication: PULMONARY ARTERIAL HYPERTENSION
     Dosage: 10 MG, QD
     Route: 048
     Dates: start: 201710, end: 20171025
  5. CLONIDINE. [Concomitant]
     Active Substance: CLONIDINE
  6. PEPCID [Concomitant]
     Active Substance: FAMOTIDINE

REACTIONS (5)
  - Abdominal discomfort [Unknown]
  - Malaise [Not Recovered/Not Resolved]
  - Vomiting [Unknown]
  - Diarrhoea [Unknown]
  - Nausea [Unknown]

NARRATIVE: CASE EVENT DATE: 201710
